FAERS Safety Report 5714845-9 (Version None)
Quarter: 2008Q2

REPORT INFORMATION
  Report Type: 
  Country: None (occurrence: None)
  Receive Date: 20080423
  Receipt Date: 20070327
  Transmission Date: 20081010
  Serious: Yes (Hospitalization)
  Sender: FDA-Public Use
  Company Number: US-BAYER-US-2007-010774

PATIENT
  Age: 60 Year
  Sex: Female

DRUGS (2)
  1. LEUKINE [Suspect]
     Route: 058
     Dates: start: 20070101
  2. OTHER CHEMOTHERAPEUTICS [Concomitant]
     Indication: BREAST CANCER

REACTIONS (2)
  - SYNCOPE [None]
  - VOMITING [None]
